FAERS Safety Report 24860573 (Version 4)
Quarter: 2025Q3

REPORT INFORMATION
  Report Type: Report from Study
  Country: US (occurrence: US)
  Receive Date: 20250120
  Receipt Date: 20250818
  Transmission Date: 20251021
  Serious: Yes (Other)
  Sender: BIOGEN
  Company Number: US-BIOGEN-2024BI01289583

PATIENT
  Sex: Female

DRUGS (5)
  1. VUMERITY [Suspect]
     Active Substance: DIROXIMEL FUMARATE
     Indication: Multiple sclerosis
     Route: 050
     Dates: start: 20240814
  2. VUMERITY [Suspect]
     Active Substance: DIROXIMEL FUMARATE
     Dosage: TAKE 2 CAPSULES (462MG) BY MOUTH TWICE DAILY.
     Route: 050
  3. ACETAZOLAMIDE [Concomitant]
     Active Substance: ACETAZOLAMIDE
     Indication: Product used for unknown indication
     Route: 050
  4. NASACORT ALLERGY 24HR [Concomitant]
     Active Substance: TRIAMCINOLONE ACETONIDE
     Indication: Product used for unknown indication
     Route: 050
  5. LOSARTAN POTASSIUM [Concomitant]
     Active Substance: LOSARTAN POTASSIUM
     Indication: Product used for unknown indication
     Route: 050

REACTIONS (9)
  - Sarcoidosis [Unknown]
  - Systemic lupus erythematosus [Unknown]
  - CSF volume increased [Unknown]
  - Influenza like illness [Unknown]
  - Hot flush [Not Recovered/Not Resolved]
  - Rash [Unknown]
  - Pruritus [Unknown]
  - Erythema [Unknown]
  - Burning sensation [Unknown]
